FAERS Safety Report 7338086-7 (Version None)
Quarter: 2011Q1

REPORT INFORMATION
  Report Type: 
  Country: None (occurrence: None)
  Receive Date: 20110308
  Receipt Date: 20110228
  Transmission Date: 20110831
  Serious: Yes (Other)
  Sender: FDA-Public Use
  Company Number: PHHY2011US09636

PATIENT
  Sex: Female
  Weight: 52.154 kg

DRUGS (3)
  1. CYCLOBENZAPRINE [Concomitant]
     Dosage: 1 DF, TID
  2. GILENYA [Suspect]
     Indication: RELAPSING-REMITTING MULTIPLE SCLEROSIS
     Dosage: 0.5 MG, DAILY
     Route: 048
     Dates: start: 20110113
  3. GABAPENTIN [Concomitant]
     Dosage: 600 MG, BID
     Route: 048

REACTIONS (1)
  - EPISTAXIS [None]
